FAERS Safety Report 10821064 (Version 1)
Quarter: 2015Q1

REPORT INFORMATION
  Report Type: Spontaneous
  Country: KR (occurrence: None)
  Receive Date: 20150213
  Receipt Date: 20150213
  Transmission Date: 20150721
  Serious: Yes (Disabling)
  Sender: FDA-Public Use
  Company Number: KP-DEXPHARM-20150104

PATIENT
  Age: 80 Year
  Sex: Female

DRUGS (3)
  1. FLUOROMETHOLONE. [Suspect]
     Active Substance: FLUOROMETHOLONE
     Route: 061
  2. DICLOFENAC [Suspect]
     Active Substance: DICLOFENAC
  3. TOSUFLOXACIN [Suspect]
     Active Substance: TOSUFLOXACIN TOSYLATE
     Route: 061

REACTIONS (4)
  - Drug interaction [None]
  - Toxicity to various agents [None]
  - Corneal deposits [None]
  - Keratitis [None]
